FAERS Safety Report 18264254 (Version 3)
Quarter: 2020Q4

REPORT INFORMATION
  Report Type: Spontaneous
  Country: US (occurrence: US)
  Receive Date: 20200914
  Receipt Date: 20201111
  Transmission Date: 20210113
  Serious: Yes (Hospitalization, Other)
  Sender: FDA-Public Use
  Company Number: US-GILEAD-2020-0494555

PATIENT
  Age: 59 Year
  Sex: Male

DRUGS (20)
  1. ACYCLOVIR [ACICLOVIR] [Concomitant]
     Active Substance: ACYCLOVIR
  2. NICARDIPINE [Concomitant]
     Active Substance: NICARDIPINE
  3. FIORICET [Concomitant]
     Active Substance: ACETAMINOPHEN\BUTALBITAL\CAFFEINE
  4. CEFEPIME [Concomitant]
     Active Substance: CEFEPIME HYDROCHLORIDE
  5. METOPROLOL. [Concomitant]
     Active Substance: METOPROLOL
  6. TACROLIMUS. [Concomitant]
     Active Substance: TACROLIMUS
  7. ASPIRIN (E.C.) [Concomitant]
     Active Substance: ASPIRIN
  8. LANTUS [Concomitant]
     Active Substance: INSULIN GLARGINE
  9. PREGABALIN. [Concomitant]
     Active Substance: PREGABALIN
  10. HUMULIN R [Concomitant]
     Active Substance: INSULIN HUMAN
  11. LABETALOL [Concomitant]
     Active Substance: LABETALOL\LABETALOL HYDROCHLORIDE
  12. PANTOPRAZOLE [Concomitant]
     Active Substance: PANTOPRAZOLE
  13. PREDNISONE. [Concomitant]
     Active Substance: PREDNISONE
  14. YESCARTA [Suspect]
     Active Substance: AXICABTAGENE CILOLEUCEL
     Indication: DIFFUSE LARGE B-CELL LYMPHOMA
     Route: 042
     Dates: start: 20200427, end: 20200427
  15. FILGRASTIM SNDZ [Concomitant]
  16. LEVOFLOXACIN. [Concomitant]
     Active Substance: LEVOFLOXACIN
  17. MICAFUNGIN. [Concomitant]
     Active Substance: MICAFUNGIN SODIUM
  18. HUMALOG [Concomitant]
     Active Substance: INSULIN LISPRO
  19. MORPHINE [Concomitant]
     Active Substance: MORPHINE
  20. CYCLOSPORINE. [Concomitant]
     Active Substance: CYCLOSPORINE

REACTIONS (2)
  - Cytokine release syndrome [Recovered/Resolved]
  - Neurotoxicity [Recovered/Resolved]

NARRATIVE: CASE EVENT DATE: 20200428
